FAERS Safety Report 18010591 (Version 2)
Quarter: 2020Q3

REPORT INFORMATION
  Report Type: Spontaneous
  Country: US (occurrence: US)
  Receive Date: 20200710
  Receipt Date: 20200716
  Transmission Date: 20201103
  Serious: Yes (Other)
  Sender: FDA-Public Use
  Company Number: US-PFIZER INC-2020263555

PATIENT
  Age: 59 Year
  Sex: Female
  Weight: 86.18 kg

DRUGS (1)
  1. ARTHROTEC [Suspect]
     Active Substance: DICLOFENAC SODIUM\MISOPROSTOL
     Indication: RHEUMATOID ARTHRITIS
     Dosage: ONE TABLET, TWICE A DAY
     Route: 048

REACTIONS (11)
  - Gastric ulcer [Unknown]
  - Condition aggravated [Unknown]
  - Illness [Unknown]
  - Arthralgia [Unknown]
  - Weight decreased [Unknown]
  - Osteoarthritis [Unknown]
  - Intervertebral disc protrusion [Unknown]
  - Spinal osteoarthritis [Unknown]
  - Breast atrophy [Unknown]
  - Back disorder [Unknown]
  - Breast cancer female [Unknown]

NARRATIVE: CASE EVENT DATE: 2020
